FAERS Safety Report 24646398 (Version 1)
Quarter: 2024Q4

REPORT INFORMATION
  Report Type: Spontaneous
  Country: BR (occurrence: BR)
  Receive Date: 20241121
  Receipt Date: 20241121
  Transmission Date: 20250114
  Serious: Yes (Death, Hospitalization)
  Sender: ROCHE
  Company Number: BR-ROCHE-10000131915

PATIENT
  Age: 67 Year
  Sex: Female

DRUGS (2)
  1. ATEZOLIZUMAB [Suspect]
     Active Substance: ATEZOLIZUMAB
     Indication: HER2 positive breast cancer
     Route: 065
  2. KADCYLA [Suspect]
     Active Substance: ADO-TRASTUZUMAB EMTANSINE
     Indication: HER2 positive breast cancer
     Route: 065

REACTIONS (9)
  - Immunodeficiency [Unknown]
  - Gait inability [Unknown]
  - Ocular icterus [Unknown]
  - Yellow skin [Unknown]
  - Speech disorder [Unknown]
  - Feeding disorder [Unknown]
  - Acute respiratory failure [Fatal]
  - Cardio-respiratory arrest [Fatal]
  - Anaemia [Unknown]
